FAERS Safety Report 11458236 (Version 1)
Quarter: 2015Q3

REPORT INFORMATION
  Report Type: Spontaneous
  Country: SK (occurrence: SK)
  Receive Date: 20150904
  Receipt Date: 20150904
  Transmission Date: 20151125
  Serious: Yes (Hospitalization)
  Sender: FDA-Public Use
  Company Number: PHHY2009SK072801

PATIENT
  Age: 50 Year
  Sex: Female

DRUGS (2)
  1. CALTRATE WITH VITAMIN D [Concomitant]
     Active Substance: CALCIUM CARBONATE\CHOLECALCIFEROL
     Indication: PRODUCT USED FOR UNKNOWN INDICATION
     Dosage: UNK
     Route: 065
     Dates: start: 20090824, end: 20090824
  2. ACLASTA [Suspect]
     Active Substance: ZOLEDRONIC ACID
     Indication: OSTEOPOROTIC FRACTURE
     Dosage: 5 MG PER 100 ML
     Route: 042
     Dates: start: 20090824

REACTIONS (5)
  - Transaminases increased [Unknown]
  - General physical health deterioration [Unknown]
  - Vertigo [Unknown]
  - Vomiting [Unknown]
  - Body temperature increased [Unknown]

NARRATIVE: CASE EVENT DATE: 20090825
